FAERS Safety Report 4845441-3 (Version None)
Quarter: 2005Q4

REPORT INFORMATION
  Report Type: 
  Country: None (occurrence: None)
  Receive Date: 20051125
  Receipt Date: 20051122
  Transmission Date: 20060501
  Serious: Yes (Hospitalization)
  Sender: FDA-Public Use
  Company Number: BEWYE160922NOV05

PATIENT
  Age: 74 Year
  Sex: Female

DRUGS (1)
  1. EFFEXOR XR [Suspect]
     Indication: DEPRESSION
     Dosage: 75 MG/ DAY, ORAL
     Route: 048
     Dates: start: 20050208, end: 20050222

REACTIONS (1)
  - DRUG INTOLERANCE [None]
